FAERS Safety Report 7909114-2 (Version None)
Quarter: 2011Q4

REPORT INFORMATION
  Report Type: 
  Country: None (occurrence: None)
  Receive Date: 20111111
  Receipt Date: 20111108
  Transmission Date: 20120403
  Serious: Yes (Other)
  Sender: FDA-Public Use
  Company Number: GB-PFIZER INC-2011275197

PATIENT
  Age: 40 Year
  Sex: Female
  Weight: 63.64 kg

DRUGS (4)
  1. DIPROSALIC [Concomitant]
     Route: 061
  2. LYRICA [Suspect]
     Indication: FIBROMYALGIA
     Dosage: 100 MG, 4X/DAY
     Dates: start: 20080101, end: 20101225
  3. DOVOBET [Concomitant]
     Route: 061
  4. PARACETAMOL [Concomitant]

REACTIONS (1)
  - ABORTION SPONTANEOUS [None]
